FAERS Safety Report 8896457 (Version 1)
Quarter: 2012Q4

REPORT INFORMATION
  Report Type: Spontaneous
  Country: CN (occurrence: None)
  Receive Date: 20121105
  Receipt Date: 20121105
  Transmission Date: 20130627
  Serious: Yes (Hospitalization)
  Sender: FDA-Public Use
  Company Number: DSA_60727_2012

PATIENT
  Age: 59 Year
  Sex: Male

DRUGS (2)
  1. 5-FU [Suspect]
     Indication: HEAD AND NECK CANCER
     Dosage: Every cycle
     Route: 042
     Dates: start: 20120511, end: 20120605
  2. CISPLATIN [Suspect]
     Indication: HEAD AND NECK CANCER
     Dosage: Every cycle
     Route: 042
     Dates: start: 20120511, end: 20120601

REACTIONS (1)
  - Bone marrow failure [None]
